FAERS Safety Report 5647645-9 (Version None)
Quarter: 2008Q1

REPORT INFORMATION
  Report Type: 
  Country: None (occurrence: None)
  Receive Date: 20080303
  Receipt Date: 20080225
  Transmission Date: 20080703
  Serious: Yes (Death, Hospitalization)
  Sender: FDA-Public Use
  Company Number: ES-ROCHE-549442

PATIENT
  Age: 70 Year
  Sex: Male
  Weight: 92 kg

DRUGS (3)
  1. CAPECITABINE [Suspect]
     Indication: COLORECTAL CANCER
     Dosage: FREQUENCY: TWICE DAILY ON DAYS 1-14 ON EVERY 3 WEEK CYCLE.
     Route: 048
     Dates: start: 20071210
  2. BEVACIZUMAB [Suspect]
     Indication: COLORECTAL CANCER
     Dosage: FREQUENCY REPORTED AS: VIAL/3W. DOSAGE FORM REPORTED AS VIAL.
     Route: 042
     Dates: start: 20071210
  3. OXALIPLATIN [Suspect]
     Indication: COLORECTAL CANCER
     Dosage: FREQUENCY: VI/3W. DOSAGE FORM REPORTED AS VIAL.
     Route: 042
     Dates: start: 20071210

REACTIONS (1)
  - DIARRHOEA [None]
